FAERS Safety Report 13704968 (Version 1)
Quarter: 2017Q2

REPORT INFORMATION
  Report Type: Spontaneous
  Country: US (occurrence: US)
  Receive Date: 20170629
  Receipt Date: 20170629
  Transmission Date: 20170830
  Serious: Yes (Hospitalization)
  Sender: FDA-Public Use
  Company Number: None

PATIENT
  Age: 14 Year
  Sex: Female
  Weight: 45 kg

DRUGS (1)
  1. CHILDRENS TYLENOL [Suspect]
     Active Substance: ACETAMINOPHEN
     Indication: PAIN
     Dosage: ?          OTHER STRENGTH:ML;?
     Route: 048
     Dates: start: 20170629, end: 20170629

REACTIONS (4)
  - Pruritus [None]
  - Urticaria [None]
  - Hypersensitivity [None]
  - Rhinorrhoea [None]

NARRATIVE: CASE EVENT DATE: 20170629
